FAERS Safety Report 10278102 (Version 2)
Quarter: 2014Q3

REPORT INFORMATION
  Report Type: Report from Study
  Country: DE (occurrence: DE)
  Receive Date: 20140704
  Receipt Date: 20140704
  Transmission Date: 20150326
  Serious: Yes (Death, Hospitalization)
  Sender: FDA-Public Use
  Company Number: DE-SHIRE-SPV1-2009-02327

PATIENT
  Age: 19 Year
  Sex: Male

DRUGS (4)
  1. IDURSULFASE [Suspect]
     Active Substance: IDURSULFASE
     Indication: MUCOPOLYSACCHARIDOSIS II
     Dosage: 18 MG, 1X/WEEK
     Route: 041
     Dates: start: 20061020
  2. DIMETINDENE [Concomitant]
     Indication: PREMEDICATION
     Dosage: 1.5 MG, 1X/WEEK
     Route: 065
     Dates: start: 20080204
  3. RANITIDINE [Concomitant]
     Active Substance: RANITIDINE\RANITIDINE HYDROCHLORIDE
     Indication: PRODUCT USED FOR UNKNOWN INDICATION
     Dosage: 300 MG, 1X/WEEK
     Route: 065
     Dates: start: 20070309
  4. RAMIPRIL. [Concomitant]
     Active Substance: RAMIPRIL
     Indication: PRODUCT USED FOR UNKNOWN INDICATION
     Dosage: 1.25 MG, 1X/DAY:QD
     Route: 065
     Dates: start: 200801

REACTIONS (3)
  - Cardiopulmonary failure [Fatal]
  - Respiratory failure [Fatal]
  - Spinal column stenosis [Fatal]

NARRATIVE: CASE EVENT DATE: 20091023
